FAERS Safety Report 7049144-9 (Version None)
Quarter: 2010Q4

REPORT INFORMATION
  Report Type: 
  Country: None (occurrence: None)
  Receive Date: 20101018
  Receipt Date: 20101008
  Transmission Date: 20110411
  Serious: Yes (Other)
  Sender: FDA-Public Use
  Company Number: US-JNJFOC-20101002825

PATIENT
  Sex: Female
  Weight: 104.33 kg

DRUGS (20)
  1. LEVAQUIN [Suspect]
     Indication: SINUSITIS
     Route: 048
  2. SYNTHROID [Concomitant]
     Indication: HYPOTHYROIDISM
     Route: 048
  3. FEMARA [Concomitant]
     Indication: BREAST CANCER
     Route: 048
  4. LISINOPRIL AND HYDROCHLOROTHIAZIDE [Concomitant]
     Indication: DIURETIC THERAPY
     Route: 048
  5. GLUMETZA [Concomitant]
     Indication: DIABETES MELLITUS
     Route: 048
  6. GLIMEPIRIDE [Concomitant]
     Indication: DIABETES MELLITUS
     Route: 048
  7. BYETTA [Concomitant]
     Indication: DIABETES MELLITUS
     Route: 058
  8. LANTUS [Concomitant]
     Indication: DIABETES MELLITUS
     Route: 058
  9. PROBIOTIC [Concomitant]
     Indication: NUTRITIONAL SUPPORT
     Route: 048
  10. TRICOR [Concomitant]
     Indication: BLOOD CHOLESTEROL INCREASED
     Route: 048
  11. LOVAZA [Concomitant]
     Indication: MEDICAL DIET
     Route: 048
  12. ASPIRIN [Concomitant]
     Indication: PROPHYLAXIS
     Route: 048
  13. FOLIC ACID/VITAMIN B [Concomitant]
     Indication: VITAMIN SUPPLEMENTATION
     Route: 048
  14. FOLIC ACID/VITAMIN B [Concomitant]
     Route: 048
  15. SINGULAIR [Concomitant]
     Indication: MULTIPLE ALLERGIES
     Route: 048
  16. ALLEGRA [Concomitant]
     Indication: MULTIPLE ALLERGIES
     Route: 048
  17. VITAMIN D [Concomitant]
     Indication: MEDICAL DIET
     Route: 048
  18. PRILOSEC [Concomitant]
     Indication: GASTROOESOPHAGEAL REFLUX DISEASE
     Route: 048
  19. PROVENTIL HFA INHALANT [Concomitant]
     Indication: ASTHMA
     Route: 055
  20. PROVENTIL HFA INHALANT [Concomitant]
     Indication: MULTIPLE ALLERGIES
     Route: 055

REACTIONS (9)
  - ARTHRALGIA [None]
  - ARTHRITIS [None]
  - GAIT DISTURBANCE [None]
  - INFLAMMATION [None]
  - JOINT RANGE OF MOTION DECREASED [None]
  - JOINT SWELLING [None]
  - LOWER EXTREMITY MASS [None]
  - PAIN [None]
  - SWELLING [None]
